FAERS Safety Report 8474466-4 (Version None)
Quarter: 2012Q2

REPORT INFORMATION
  Report Type: 
  Country: None (occurrence: None)
  Receive Date: 20120628
  Receipt Date: 20120625
  Transmission Date: 20120825
  Serious: Yes (Life-Threatening, Hospitalization)
  Sender: FDA-Public Use
  Company Number: PHHY2012IT054865

PATIENT
  Sex: Female

DRUGS (6)
  1. MEDROL [Suspect]
     Indication: RENAL TRANSPLANT
     Dosage: 4 MG, UNK
     Route: 048
     Dates: start: 20120613
  2. BACTRIM [Concomitant]
     Dosage: 0.5 POSOLOGIC UNIT EVERY OTHER DAY
     Route: 048
     Dates: start: 20120617
  3. ATENOLOL [Concomitant]
     Indication: HYPERTENSION
     Dosage: 100 MG, UNK
     Dates: start: 20120620
  4. NEORAL [Suspect]
     Indication: RENAL TRANSPLANT
     Dosage: 75 MG, BID
     Route: 048
     Dates: start: 20120613
  5. PANTOPRAZOLE SODIUM [Concomitant]
     Dosage: 40 MG, UNK
     Route: 048
     Dates: start: 20120617
  6. ZOVIRAX [Concomitant]
     Indication: ORAL HERPES
     Dosage: 800 MG, UNK
     Route: 048
     Dates: start: 20120623

REACTIONS (3)
  - COMA [None]
  - CENTRAL NERVOUS SYSTEM INFECTION [None]
  - CONVULSION [None]
